FAERS Safety Report 25011299 (Version 1)
Quarter: 2025Q1

REPORT INFORMATION
  Report Type: Spontaneous
  Country: US (occurrence: US)
  Receive Date: 20250226
  Receipt Date: 20250226
  Transmission Date: 20250408
  Serious: Yes (Hospitalization, Other)
  Sender: VALIDUS
  Company Number: US-VALIDUS PHARMACEUTICALS LLC-US-VDP-2025-019563

PATIENT
  Age: 79 Year
  Sex: Female

DRUGS (8)
  1. LASIX [Suspect]
     Active Substance: FUROSEMIDE
     Indication: Product used for unknown indication
     Route: 065
  2. IBRANCE [Suspect]
     Active Substance: PALBOCICLIB
     Indication: Hormone receptor positive breast cancer
     Dosage: 1 TAB, QD  FOR 14 DAYS THEN HOLD 7 REPEAT.
     Route: 048
     Dates: start: 20201016
  3. IBRANCE [Suspect]
     Active Substance: PALBOCICLIB
     Indication: HER2 negative breast cancer
     Route: 048
     Dates: start: 202307
  4. IBRANCE [Suspect]
     Active Substance: PALBOCICLIB
     Dosage: 75 MG, QD (2 WEEKS ON 1 WEEK OFF)
     Route: 048
     Dates: start: 20230828, end: 202402
  5. IBRANCE [Suspect]
     Active Substance: PALBOCICLIB
     Dosage: 75 MG, QD X 14/21 DAYS
     Route: 048
     Dates: start: 20240312, end: 20240411
  6. IBRANCE [Suspect]
     Active Substance: PALBOCICLIB
     Dosage: 75 MG, QD X 14/21 DAYS
     Route: 048
     Dates: start: 20240516
  7. FEMARA [Suspect]
     Active Substance: LETROZOLE
     Indication: HER2 negative breast cancer
     Dosage: 2.5 MG, QD
     Route: 065
     Dates: start: 20201010
  8. FEMARA [Suspect]
     Active Substance: LETROZOLE
     Indication: Hormone receptor positive breast cancer

REACTIONS (11)
  - Respiratory failure [Recovered/Resolved]
  - Left ventricular failure [Unknown]
  - Condition aggravated [Unknown]
  - Pneumonia [Recovered/Resolved]
  - Hyponatraemia [Unknown]
  - Neutropenia [Unknown]
  - Fatigue [Unknown]
  - Asthenia [Unknown]
  - Nausea [Unknown]
  - Blood calcium decreased [Recovering/Resolving]
  - Anaemia [Unknown]

NARRATIVE: CASE EVENT DATE: 20230101
